FAERS Safety Report 4371038-8 (Version None)
Quarter: 2004Q2

REPORT INFORMATION
  Report Type: 
  Country: None (occurrence: None)
  Receive Date: 20040604
  Receipt Date: 20031107
  Transmission Date: 20050107
  Serious: Yes (Life-Threatening, Hospitalization)
  Sender: FDA-Public Use
  Company Number: JP-MERCK-0311USA00918

PATIENT
  Age: 70 Year
  Sex: Female
  Weight: 51 kg

DRUGS (6)
  1. FOSAMAX [Suspect]
     Indication: OSTEOPOROSIS
     Route: 048
     Dates: start: 20030307, end: 20030916
  2. BUCILLAMINE [Concomitant]
     Indication: RHEUMATOID ARTHRITIS
     Route: 065
     Dates: start: 20030620, end: 20030916
  3. CALCITRIOL [Concomitant]
     Indication: OSTEOPOROSIS
     Route: 065
     Dates: start: 20030307, end: 20030916
  4. PRAVASTATIN SODIUM [Concomitant]
     Indication: HYPERCHOLESTEROLAEMIA
     Route: 065
     Dates: start: 20011109, end: 20030916
  5. SULFASALAZINE [Concomitant]
     Indication: RHEUMATOID ARTHRITIS
     Route: 065
     Dates: start: 20030620, end: 20030916
  6. TULOBUTEROL [Concomitant]
     Indication: ASTHMA
     Route: 065
     Dates: start: 20030307, end: 20030916

REACTIONS (1)
  - INTERSTITIAL LUNG DISEASE [None]
